FAERS Safety Report 13953596 (Version 12)
Quarter: 2018Q1

REPORT INFORMATION
  Report Type: Spontaneous
  Country: US (occurrence: US)
  Receive Date: 20170911
  Receipt Date: 20180215
  Transmission Date: 20180508
  Serious: Yes (Death, Hospitalization)
  Sender: FDA-Public Use
  Company Number: US-PFIZER INC-2017349640

PATIENT
  Age: 79 Year
  Sex: Female

DRUGS (11)
  1. SUTENT [Suspect]
     Active Substance: SUNITINIB MALATE
     Dosage: 37.5 MG, CYCLIC (28 DAYS ON/14 DAYS OFF)
     Dates: start: 20170901
  2. SUTENT [Suspect]
     Active Substance: SUNITINIB MALATE
     Dosage: 37.5 MG, UNK
     Route: 048
     Dates: start: 2017
  3. OXYCODONE [Concomitant]
     Active Substance: OXYCODONE
     Dosage: UNK
  4. SUTENT [Suspect]
     Active Substance: SUNITINIB MALATE
     Indication: BONE NEOPLASM
     Dosage: 37.5 MG, DAILY
  5. LEVOTHYROXINE. [Concomitant]
     Active Substance: LEVOTHYROXINE
     Dosage: UNK
  6. SODIUM [Concomitant]
     Active Substance: SODIUM
     Dosage: UNK, 1X/DAY (PILL)
  7. OXYGEN. [Concomitant]
     Active Substance: OXYGEN
     Dosage: 24 HRS/DAY
  8. METOPROLOL. [Concomitant]
     Active Substance: METOPROLOL
     Dosage: UNK
  9. OXYCONTIN [Concomitant]
     Active Substance: OXYCODONE HYDROCHLORIDE
     Dosage: UNK
  10. CYMBALTA [Concomitant]
     Active Substance: DULOXETINE HYDROCHLORIDE
     Dosage: UNK
  11. LYRICA [Concomitant]
     Active Substance: PREGABALIN
     Dosage: UNK

REACTIONS (17)
  - Product use in unapproved indication [Unknown]
  - Postoperative wound complication [Unknown]
  - Abdominal pain [Unknown]
  - Fatigue [Unknown]
  - Constipation [Recovering/Resolving]
  - Impaired healing [Unknown]
  - Back pain [Unknown]
  - Decreased appetite [Unknown]
  - Somnolence [Unknown]
  - Neoplasm progression [Fatal]
  - Sciatica [Unknown]
  - Pain [Unknown]
  - Dysgeusia [Unknown]
  - Asthenia [Unknown]
  - Dyspnoea [Unknown]
  - Frequent bowel movements [Unknown]
  - Nausea [Unknown]

NARRATIVE: CASE EVENT DATE: 201709
